FAERS Safety Report 8166698-X (Version None)
Quarter: 2012Q1

REPORT INFORMATION
  Report Type: 
  Country: None (occurrence: None)
  Receive Date: 20120227
  Receipt Date: 20120213
  Transmission Date: 20120608
  Serious: Yes (Other)
  Sender: FDA-Public Use
  Company Number: AU-ROCHE-1039983

PATIENT
  Sex: Female

DRUGS (7)
  1. RAMIPRIL [Concomitant]
  2. FUROSEMIDE [Concomitant]
     Route: 042
  3. PREDNISOLONE [Concomitant]
  4. ACTEMRA [Suspect]
     Indication: RHEUMATOID ARTHRITIS
     Dates: start: 20100924
  5. INSULIN [Concomitant]
  6. DILTIAZEM HCL [Concomitant]
  7. METFORMIN HCL [Concomitant]

REACTIONS (2)
  - PAIN [None]
  - MUSCULAR WEAKNESS [None]
